FAERS Safety Report 26214789 (Version 1)
Quarter: 2025Q4

REPORT INFORMATION
  Report Type: Spontaneous
  Country: US (occurrence: US)
  Receive Date: 20251230
  Receipt Date: 20251230
  Transmission Date: 20260119
  Serious: No
  Sender: INCYTE
  Company Number: US-EVENT-005308

PATIENT

DRUGS (1)
  1. NIKTIMVO [Suspect]
     Active Substance: AXATILIMAB-CSFR
     Indication: Graft versus host disease
     Dosage: 9 MILLIGRAM
     Route: 065

REACTIONS (2)
  - Vomiting [Unknown]
  - Gastrointestinal viral infection [Unknown]
